FAERS Safety Report 8115796-5 (Version None)
Quarter: 2012Q1

REPORT INFORMATION
  Report Type: 
  Country: None (occurrence: None)
  Receive Date: 20120206
  Receipt Date: 20120124
  Transmission Date: 20120608
  Serious: Yes (Hospitalization)
  Sender: FDA-Public Use
  Company Number: FR-UCBSA-050386

PATIENT
  Sex: Female

DRUGS (4)
  1. CIMZIA [Suspect]
     Indication: RHEUMATOID ARTHRITIS
     Dosage: 400MG - SINGLE DOSE
     Route: 058
     Dates: start: 20111216, end: 20111216
  2. LORAZEPAM [Concomitant]
  3. GLUCOPHAGE [Concomitant]
  4. ZOLPIDEM [Concomitant]

REACTIONS (1)
  - URTICARIA [None]
